FAERS Safety Report 4771968-9 (Version None)
Quarter: 2005Q3

REPORT INFORMATION
  Report Type: 
  Country: None (occurrence: None)
  Receive Date: 20050916
  Receipt Date: 20050729
  Transmission Date: 20060218
  Serious: Yes (Other)
  Sender: FDA-Public Use
  Company Number: PHBS2005JP11212

PATIENT
  Age: 40 Year
  Sex: Male
  Weight: 73 kg

DRUGS (15)
  1. MICARDIS [Concomitant]
     Dosage: 60 MG/DAY
     Route: 048
     Dates: start: 20050728
  2. CALSLOT [Concomitant]
     Indication: HYPERTENSION
     Dosage: 20 MG/DAY
     Route: 048
     Dates: start: 20050713
  3. ALLOPURINOL [Concomitant]
     Indication: HYPERURICAEMIA
     Dosage: 50 MG/DAY
     Route: 048
     Dates: start: 20050713
  4. CHOLEBRINE [Concomitant]
     Indication: HYPERLIPIDAEMIA
     Dosage: 2.14 G/DAY
     Route: 048
     Dates: start: 20050713
  5. ALDACTONE [Concomitant]
     Indication: HYPERTENSION
     Dosage: 50 MG/DAY
     Route: 048
     Dates: start: 20050713
  6. CARDENALIN [Concomitant]
     Indication: HYPERTENSION
     Dosage: 6 MG/DAY
     Route: 048
     Dates: start: 20050713
  7. EPADEL [Concomitant]
     Dosage: 1800 MG/DAY
     Route: 048
     Dates: start: 20050716
  8. IMIDAPRIL HYDROCHLORIDE [Concomitant]
     Dosage: 5 MG/DAY
     Route: 048
     Dates: start: 20050718
  9. ASPARA K [Concomitant]
     Dosage: 900 MG/DAY
     Route: 048
     Dates: start: 20050713
  10. DIOVAN [Suspect]
     Indication: PRIMARY HYPERALDOSTERONISM
     Dosage: 20 MG/DAY
     Route: 048
     Dates: start: 20040609, end: 20040623
  11. DIOVAN [Suspect]
     Dosage: 40 MG/DAY
     Route: 048
     Dates: start: 20040624, end: 20040628
  12. DIOVAN [Suspect]
     Dosage: 80 MG/DAY
     Route: 048
     Dates: start: 20040629, end: 20050401
  13. DIOVAN [Suspect]
     Dosage: 80 MG/DAY
     Route: 048
     Dates: start: 20050713, end: 20050722
  14. DIOVAN [Suspect]
     Dosage: 120 MG/DAY
     Route: 048
     Dates: start: 20050723, end: 20050727
  15. ACECOL [Concomitant]
     Indication: HYPERTENSION
     Dosage: 5 MG, UNK
     Route: 048
     Dates: start: 20050713

REACTIONS (4)
  - C-REACTIVE PROTEIN INCREASED [None]
  - DRUG INEFFECTIVE [None]
  - MALAISE [None]
  - SOMNOLENCE [None]
